FAERS Safety Report 17795861 (Version 1)
Quarter: 2020Q2

REPORT INFORMATION
  Report Type: Spontaneous
  Country: US (occurrence: US)
  Receive Date: 20200516
  Receipt Date: 20200516
  Transmission Date: 20200714
  Serious: No
  Sender: FDA-Public Use
  Company Number: NVSC2020US132667

PATIENT
  Sex: Female

DRUGS (1)
  1. PIQRAY [Suspect]
     Active Substance: ALPELISIB
     Indication: BREAST CANCER FEMALE
     Dosage: 600 MG, QD
     Route: 065
     Dates: start: 20200421

REACTIONS (2)
  - Dysuria [Unknown]
  - Vulvovaginal burning sensation [Unknown]
